FAERS Safety Report 5919031-5 (Version None)
Quarter: 2008Q4

REPORT INFORMATION
  Report Type: 
  Country: None (occurrence: None)
  Receive Date: 20081014
  Receipt Date: 20081014
  Transmission Date: 20090506
  Serious: Yes (Life-Threatening, Other)
  Sender: FDA-Public Use
  Company Number: None

PATIENT
  Sex: Female
  Weight: 73.4827 kg

DRUGS (1)
  1. OMNICEF [Suspect]
     Indication: INFECTION
     Dosage: 1 TABLET 2 TIMES A DAY PO
     Route: 048
     Dates: start: 20080924, end: 20081001

REACTIONS (2)
  - DRUG HYPERSENSITIVITY [None]
  - IMPAIRED WORK ABILITY [None]
